FAERS Safety Report 5768234-1 (Version None)
Quarter: 2008Q2

REPORT INFORMATION
  Report Type: 
  Country: None (occurrence: None)
  Receive Date: 20080612
  Receipt Date: 20080310
  Transmission Date: 20081010
  Serious: No
  Sender: FDA-Public Use
  Company Number: US-ABBOTT-06P-163-0324378-00

PATIENT
  Sex: Female
  Weight: 29 kg

DRUGS (6)
  1. HUMIRA [Suspect]
     Indication: SPONDYLOARTHROPATHY
     Route: 058
     Dates: start: 20080223
  2. HUMIRA [Suspect]
     Route: 058
     Dates: start: 20060101, end: 20070501
  3. MELOXICAM [Concomitant]
     Indication: SPONDYLOARTHROPATHY
     Route: 048
     Dates: start: 20050707
  4. BALSALAZIDE DISODIUM [Concomitant]
     Indication: COLITIS ULCERATIVE
     Route: 048
     Dates: start: 20050201
  5. MESALAMINE [Concomitant]
     Indication: COLITIS ULCERATIVE
     Route: 048
  6. ASPIRIN [Concomitant]
     Indication: COAGULOPATHY
     Route: 048

REACTIONS (2)
  - INJECTION SITE IRRITATION [None]
  - INJECTION SITE PAIN [None]
